FAERS Safety Report 4680122-0 (Version None)
Quarter: 2005Q2

REPORT INFORMATION
  Report Type: 
  Country: None (occurrence: None)
  Receive Date: 20050531
  Receipt Date: 20050520
  Transmission Date: 20051028
  Serious: Yes (Other)
  Sender: FDA-Public Use
  Company Number: 2005-05-1579

PATIENT
  Sex: Female

DRUGS (2)
  1. PEG-INTRON [Suspect]
     Dosage: SUBCUTANEOUS
     Route: 058
  2. RIBAVIRIN [Suspect]
     Dosage: ORAL
     Route: 048

REACTIONS (2)
  - BIOPSY SITE UNSPECIFIED ABNORMAL [None]
  - CHOLESTASIS [None]
